FAERS Safety Report 8556855-2 (Version None)
Quarter: 2012Q2

REPORT INFORMATION
  Report Type: 
  Country: None (occurrence: None)
  Receive Date: 20120418
  Receipt Date: 20100818
  Transmission Date: 20120825
  Serious: Yes (Other)
  Sender: FDA-Public Use
  Company Number: PHEH2010US03520

PATIENT
  Sex: Female

DRUGS (3)
  1. PROVERA [Suspect]
  2. ESTRADERM [Suspect]
     Dosage: TRANSDERMAL
     Route: 062
  3. PREMARIN [Suspect]

REACTIONS (11)
  - BREAST CANCER [None]
  - PHYSICAL DISABILITY [None]
  - ANXIETY [None]
  - IMPAIRED WORK ABILITY [None]
  - BREAST OPERATION [None]
  - OESTROGEN RECEPTOR ASSAY POSITIVE [None]
  - EXPLORATORY OPERATION [None]
  - BREAST LUMP REMOVAL [None]
  - PAIN [None]
  - EMOTIONAL DISTRESS [None]
  - ANTIOESTROGEN THERAPY [None]
